FAERS Safety Report 7163264-X (Version None)
Quarter: 2010Q4

REPORT INFORMATION
  Report Type: 
  Country: None (occurrence: None)
  Receive Date: 20101215
  Receipt Date: 20100223
  Transmission Date: 20110411
  Serious: No
  Sender: FDA-Public Use
  Company Number: US-ABBOTT-10P-163-0629350-00

PATIENT
  Sex: Male

DRUGS (2)
  1. HYTRIN [Suspect]
     Indication: BENIGN PROSTATIC HYPERPLASIA
     Route: 048
  2. HYTRIN [Suspect]

REACTIONS (2)
  - DRUG EFFECT DECREASED [None]
  - NASAL CONGESTION [None]
